FAERS Safety Report 8601897-1 (Version None)
Quarter: 2012Q3

REPORT INFORMATION
  Report Type: 
  Country: None (occurrence: None)
  Receive Date: 20120817
  Receipt Date: 20120723
  Transmission Date: 20120928
  Serious: No
  Sender: FDA-Public Use
  Company Number: US-B.I. PHARMACEUTICALS,INC./RIDGEFIELD-2012-BP-19552BP

PATIENT
  Sex: Female

DRUGS (5)
  1. NEBULIZER-COMBIVENT [Concomitant]
     Indication: DYSPNOEA
     Route: 055
  2. CELEBREX [Concomitant]
     Indication: ARTHRITIS
     Dosage: 200 MG
     Route: 048
  3. PROVENTIL [Concomitant]
     Indication: UNEVALUABLE EVENT
     Route: 055
  4. LOSARTAN POTASSIUM AND HYDROCHLOROTHIAZIDE [Concomitant]
     Indication: HYPERTENSION
     Route: 048
  5. SPIRIVA [Suspect]
     Indication: DYSPNOEA
     Dosage: 18 MCG
     Route: 055
     Dates: start: 20090101

REACTIONS (3)
  - DYSPNOEA [None]
  - MALAISE [None]
  - UNEVALUABLE EVENT [None]
